FAERS Safety Report 4568317-8 (Version None)
Quarter: 2005Q1

REPORT INFORMATION
  Report Type: 
  Country: None (occurrence: None)
  Receive Date: 20050131
  Receipt Date: 20050118
  Transmission Date: 20050727
  Serious: Yes (Life-Threatening)
  Sender: FDA-Public Use
  Company Number: 2005014581

PATIENT
  Age: 75 Year
  Sex: Male

DRUGS (6)
  1. BEXTRA [Suspect]
     Indication: PAIN
     Dosage: 20 MG (20 MG, 1 IN 1 D), ORAL
     Route: 048
     Dates: start: 20041029, end: 20041112
  2. RIVASTIGMINE TARTRATE [Suspect]
     Indication: DEMENTIA
     Dosage: 3 MG (1.5 MG, 2 IN 1 D), ORAL
     Route: 048
     Dates: start: 20041105, end: 20041112
  3. SINEMET [Concomitant]
  4. ESCITALOPRAM (ESCILATORPOAM) [Concomitant]
  5. HYDROXOCOBALAMIN ACETATE (HYDROXOCOBALAMIN ACETATE) [Concomitant]
  6. FINASTERIDE [Concomitant]

REACTIONS (7)
  - BENIGN PROSTATIC HYPERPLASIA [None]
  - DEMENTIA [None]
  - DEPRESSION [None]
  - HAEMOGLOBIN DECREASED [None]
  - MELAENA [None]
  - OESOPHAGITIS ULCERATIVE [None]
  - VITAMIN B12 DEFICIENCY [None]
